FAERS Safety Report 4955937-1 (Version None)
Quarter: 2006Q1

REPORT INFORMATION
  Report Type: 
  Country: None (occurrence: None)
  Receive Date: 20060201
  Receipt Date: 20051031
  Transmission Date: 20060701
  Serious: No
  Sender: FDA-Public Use
  Company Number: FACT0500652

PATIENT
  Age: 71 Year
  Sex: Female
  Weight: 69.4 kg

DRUGS (3)
  1. FACTIVE [Suspect]
     Indication: RESPIRATORY TRACT INFECTION BACTERIAL
     Dosage: 320MG, QD, ORAL
     Route: 048
     Dates: start: 20051025
  2. AVELOX [Suspect]
     Indication: SINUSITIS
  3. VASOTEC [Concomitant]

REACTIONS (3)
  - DIARRHOEA [None]
  - NAUSEA [None]
  - PAIN [None]
